FAERS Safety Report 18521601 (Version 2)
Quarter: 2020Q4

REPORT INFORMATION
  Report Type: Other
  Country: CA (occurrence: CA)
  Receive Date: 20201119
  Receipt Date: 20201127
  Transmission Date: 20210114
  Serious: Yes (Hospitalization, Other)
  Sender: FDA-Public Use
  Company Number: CA-APOTEX-2020AP021607

PATIENT
  Sex: Female

DRUGS (16)
  1. CYCLOSPORINE. [Suspect]
     Active Substance: CYCLOSPORINE
     Indication: COLITIS
  2. FENTANYL. [Concomitant]
     Active Substance: FENTANYL
     Dosage: 3 MILLIGRAM
     Route: 042
  3. PREDNISONE. [Suspect]
     Active Substance: PREDNISONE
     Indication: COLITIS
     Dosage: 40 MILLIGRAM, QD
     Route: 065
  4. ENTYVIO [Suspect]
     Active Substance: VEDOLIZUMAB
     Indication: COLITIS
     Dosage: UNK
     Route: 065
  5. INFLIXIMAB [Suspect]
     Active Substance: INFLIXIMAB
     Indication: COLITIS ULCERATIVE
     Dosage: UNK
     Route: 065
  6. ELIQUIS [Suspect]
     Active Substance: APIXABAN
     Indication: COLITIS
     Dosage: UNK
     Route: 065
  7. VEDOLIZUMAB [Suspect]
     Active Substance: VEDOLIZUMAB
     Indication: COLITIS ULCERATIVE
     Dosage: UNK
     Route: 042
  8. CYCLOSPORINE. [Suspect]
     Active Substance: CYCLOSPORINE
     Indication: COLITIS ULCERATIVE
     Dosage: UNK
     Route: 065
  9. ELIQUIS [Suspect]
     Active Substance: APIXABAN
     Indication: COLITIS ULCERATIVE
     Dosage: 2 DOSAGE FORM, QD
     Route: 065
  10. ENTYVIO [Suspect]
     Active Substance: VEDOLIZUMAB
     Indication: COLITIS ULCERATIVE
     Dosage: UNK
     Route: 042
  11. STELARA [Suspect]
     Active Substance: USTEKINUMAB
     Indication: COLITIS ULCERATIVE
     Dosage: UNK
     Route: 058
  12. PREDNISONE. [Suspect]
     Active Substance: PREDNISONE
     Indication: COLITIS ULCERATIVE
     Dosage: 30 MILLIGRAM, QD
     Route: 065
  13. INFLIXIMAB [Suspect]
     Active Substance: INFLIXIMAB
     Indication: COLITIS
  14. STELARA [Suspect]
     Active Substance: USTEKINUMAB
     Indication: COLITIS
     Dosage: UNK
     Route: 065
  15. VEDOLIZUMAB [Suspect]
     Active Substance: VEDOLIZUMAB
     Indication: COLITIS
     Dosage: UNK
     Route: 065
  16. FENTANYL. [Concomitant]
     Active Substance: FENTANYL
     Indication: PRODUCT USED FOR UNKNOWN INDICATION
     Dosage: 50 MICROGRAM
     Route: 042

REACTIONS (24)
  - Haematocrit decreased [Unknown]
  - Haemoglobin decreased [Unknown]
  - Monocyte count decreased [Unknown]
  - Neutrophil count increased [Unknown]
  - Hypersensitivity [Unknown]
  - Abdominal lymphadenopathy [Unknown]
  - Haematochezia [Unknown]
  - Mean platelet volume decreased [Unknown]
  - Red cell distribution width increased [Unknown]
  - C-reactive protein increased [Unknown]
  - Red blood cell count decreased [Unknown]
  - Gamma-glutamyltransferase increased [Unknown]
  - Product use in unapproved indication [Unknown]
  - Colitis ulcerative [Unknown]
  - Mean cell haemoglobin concentration decreased [Unknown]
  - Condition aggravated [Unknown]
  - Lymphocyte count decreased [Unknown]
  - Platelet count increased [Unknown]
  - Intentional product use issue [Unknown]
  - Blood cholesterol increased [Unknown]
  - Colitis [Unknown]
  - Pulmonary embolism [Unknown]
  - Off label use [Unknown]
  - Drug ineffective [Unknown]
